FAERS Safety Report 20328499 (Version 1)
Quarter: 2022Q1

REPORT INFORMATION
  Report Type: Report from Study
  Country: US (occurrence: US)
  Receive Date: 20220112
  Receipt Date: 20220112
  Transmission Date: 20220423
  Serious: Yes (Hospitalization, Other)
  Sender: FDA-Public Use
  Company Number: US-ABBVIE-21K-163-3779002-00

PATIENT
  Sex: Male
  Weight: 136.20 kg

DRUGS (5)
  1. SKYRIZI [Suspect]
     Active Substance: RISANKIZUMAB-RZAA
     Indication: Psoriasis
     Route: 058
     Dates: start: 201907
  2. SKYRIZI [Suspect]
     Active Substance: RISANKIZUMAB-RZAA
     Indication: Psoriasis
     Route: 058
     Dates: start: 2018, end: 201902
  3. LEVOTHYROXINE [Concomitant]
     Active Substance: LEVOTHYROXINE
     Indication: Hypothyroidism
  4. AMITRIPTYLINE [Concomitant]
     Active Substance: AMITRIPTYLINE
     Indication: Neuralgia
     Dosage: ONCE A NIGHT
  5. AMITRIPTYLINE [Concomitant]
     Active Substance: AMITRIPTYLINE
     Indication: Sleep disorder therapy

REACTIONS (27)
  - Spinal ligament ossification [Not Recovered/Not Resolved]
  - Ligament injury [Recovered/Resolved]
  - Osteoarthritis [Recovered/Resolved]
  - Arthropathy [Recovered/Resolved]
  - Scar [Recovered/Resolved]
  - Joint swelling [Recovered/Resolved]
  - Arthralgia [Recovered/Resolved]
  - Congenital spinal cord anomaly [Recovered/Resolved]
  - Spinal cord disorder [Recovered/Resolved]
  - Blindness [Recovered/Resolved]
  - Diplopia [Recovered/Resolved]
  - Nerve compression [Not Recovered/Not Resolved]
  - Nerve injury [Not Recovered/Not Resolved]
  - Gait disturbance [Not Recovered/Not Resolved]
  - Vertigo [Not Recovered/Not Resolved]
  - Dizziness [Not Recovered/Not Resolved]
  - Spinal stenosis [Unknown]
  - Rotator cuff syndrome [Not Recovered/Not Resolved]
  - Nervous system disorder [Unknown]
  - Fine motor skill dysfunction [Not Recovered/Not Resolved]
  - Bell^s palsy [Recovered/Resolved]
  - Psoriasis [Not Recovered/Not Resolved]
  - Treatment noncompliance [Recovered/Resolved]
  - Influenza like illness [Recovered/Resolved]
  - Illness [Recovered/Resolved]
  - Hypoaesthesia [Not Recovered/Not Resolved]
  - Coordination abnormal [Not Recovered/Not Resolved]

NARRATIVE: CASE EVENT DATE: 20180101
